FAERS Safety Report 25656205 (Version 3)
Quarter: 2025Q4

REPORT INFORMATION
  Report Type: Other
  Country: US (occurrence: US)
  Receive Date: 20250807
  Receipt Date: 20251018
  Transmission Date: 20260118
  Serious: No
  Sender: TRAVERE THERAPEUTICS
  Company Number: US-TRAVERE-2025TVT01076

PATIENT
  Age: 63 Year
  Sex: Male

DRUGS (4)
  1. FILSPARI [Suspect]
     Active Substance: SPARSENTAN
     Indication: IgA nephropathy
     Route: 048
     Dates: start: 20250628
  2. FILSPARI [Suspect]
     Active Substance: SPARSENTAN
     Route: 048
     Dates: start: 20250712
  3. FILSPARI [Suspect]
     Active Substance: SPARSENTAN
     Route: 048
     Dates: start: 20250603
  4. TARPEYO [Concomitant]
     Active Substance: BUDESONIDE

REACTIONS (3)
  - Gout [Unknown]
  - Dizziness [Recovered/Resolved]
  - Peripheral swelling [None]

NARRATIVE: CASE EVENT DATE: 20250701
